FAERS Safety Report 13685176 (Version 2)
Quarter: 2017Q3

REPORT INFORMATION
  Report Type: Report from Study
  Country: None (occurrence: NL)
  Receive Date: 20170623
  Receipt Date: 20170711
  Transmission Date: 20171127
  Serious: Yes (Hospitalization)
  Sender: FDA-Public Use
  Company Number: NL-ABBVIE-17K-114-2013211-00

PATIENT
  Sex: Male
  Weight: 95 kg

DRUGS (3)
  1. MADOPAR [Concomitant]
     Active Substance: BENSERAZIDE HYDROCHLORIDE\LEVODOPA
     Indication: PRODUCT USED FOR UNKNOWN INDICATION
  2. BETMIGA [Concomitant]
     Active Substance: MIRABEGRON
     Indication: PRODUCT USED FOR UNKNOWN INDICATION
  3. DUODOPA [Suspect]
     Active Substance: CARBIDOPA\LEVODOPA
     Indication: PARKINSON^S DISEASE
     Dosage: MORNING DOSE: 5.0, CONTINUOUS DOSE: 2.3, EXTRA DOSE: 2.0
     Route: 050
     Dates: start: 20160928

REACTIONS (4)
  - Cystitis escherichia [Not Recovered/Not Resolved]
  - Antimicrobial susceptibility test resistant [Not Recovered/Not Resolved]
  - Poor quality sleep [Recovering/Resolving]
  - Gait disturbance [Recovering/Resolving]
